FAERS Safety Report 24155040 (Version 1)
Quarter: 2024Q3

REPORT INFORMATION
  Report Type: Spontaneous
  Country: US (occurrence: US)
  Receive Date: 20240731
  Receipt Date: 20240731
  Transmission Date: 20241017
  Serious: Yes (Death, Hospitalization)
  Sender: LUOXIN AUROVITAS PHARMA(CHENGDU)
  Company Number: US-LUOXIN-LUX-2024-US-LIT-00041

PATIENT
  Age: 12 Year
  Sex: Male

DRUGS (17)
  1. TOBRAMYCIN [Suspect]
     Active Substance: TOBRAMYCIN\TOBRAMYCIN SULFATE
     Indication: Escherichia infection
     Route: 065
  2. POLYMYXIN B [Suspect]
     Active Substance: POLYMYXIN B
     Indication: Escherichia infection
     Dosage: LOADING DOSE OF 10 00 000U, FOLLOWED BY 12 500 U/KG
     Route: 065
  3. AVIBACTAM SODIUM\CEFTAZIDIME [Concomitant]
     Active Substance: AVIBACTAM SODIUM\CEFTAZIDIME
     Indication: Escherichia infection
     Dosage: AZTREONAM AVIBACTAM HAD INCREASED FROM 16 TO 64 UG/ML
     Route: 065
  4. AZTREONAM [Concomitant]
     Active Substance: AZTREONAM
     Indication: Escherichia infection
     Dosage: AZTREONAM AVIBACTAM HAD INCREASED FROM 16 TO 64 UG/ML
  5. CEFIDEROCOL [Concomitant]
     Active Substance: CEFIDEROCOL
     Indication: Escherichia infection
     Route: 065
  6. BASILIXIMAB [Concomitant]
     Active Substance: BASILIXIMAB
     Indication: Graft versus host disease
     Route: 065
  7. METHYLPREDNISOLONE [Concomitant]
     Active Substance: METHYLPREDNISOLONE
     Indication: Graft versus host disease
     Route: 065
  8. TACROLIMUS [Concomitant]
     Active Substance: TACROLIMUS
     Indication: Graft versus host disease
     Route: 065
  9. RUXOLITINIB [Concomitant]
     Active Substance: RUXOLITINIB
     Indication: Graft versus host disease
     Route: 065
  10. BELUMOSUDIL [Concomitant]
     Active Substance: BELUMOSUDIL
     Indication: Graft versus host disease
     Route: 065
  11. VEDOLIZUMAB [Concomitant]
     Active Substance: VEDOLIZUMAB
     Indication: Graft versus host disease
     Route: 065
  12. 1-antitrypsin [Concomitant]
     Indication: Graft versus host disease
     Route: 065
  13. MEROPENEM [Concomitant]
     Active Substance: MEROPENEM
     Indication: Product used for unknown indication
     Route: 065
  14. CEFTRIAXONE [Concomitant]
     Active Substance: CEFTRIAXONE\CEFTRIAXONE SODIUM
     Indication: Product used for unknown indication
     Route: 065
  15. VANCOMYCIN [Concomitant]
     Active Substance: VANCOMYCIN
     Indication: Product used for unknown indication
     Route: 065
  16. METRONIDAZOLE [Concomitant]
     Active Substance: METRONIDAZOLE
     Indication: Product used for unknown indication
     Route: 065
  17. LEVOFLOXACIN [Concomitant]
     Active Substance: LEVOFLOXACIN
     Indication: Product used for unknown indication
     Route: 065

REACTIONS (1)
  - Drug ineffective [Fatal]
